FAERS Safety Report 5014932-7 (Version None)
Quarter: 2006Q2

REPORT INFORMATION
  Report Type: 
  Country: None (occurrence: None)
  Receive Date: 20060531
  Receipt Date: 20060403
  Transmission Date: 20061013
  Serious: Yes (Other)
  Sender: FDA-Public Use
  Company Number: CN-ROCHE-443443

PATIENT
  Age: 56 Year
  Sex: Male
  Weight: 95.3 kg

DRUGS (1)
  1. XENICAL [Suspect]
     Indication: OBESITY
     Route: 048
     Dates: start: 20050915, end: 20060315

REACTIONS (4)
  - MYOCARDIAL ISCHAEMIA [None]
  - PHARYNGOLARYNGEAL PAIN [None]
  - SINUS ARRHYTHMIA [None]
  - SINUS BRADYCARDIA [None]
